FAERS Safety Report 6786063-7 (Version None)
Quarter: 2010Q2

REPORT INFORMATION
  Report Type: 
  Country: None (occurrence: None)
  Receive Date: 20100623
  Receipt Date: 20100613
  Transmission Date: 20101027
  Serious: Yes (Other)
  Sender: FDA-Public Use
  Company Number: PHHY2010HU34869

PATIENT
  Age: 78 Year
  Sex: Male

DRUGS (1)
  1. ZOMETA [Suspect]
     Indication: METASTASES TO BONE
     Dosage: UNK
     Dates: start: 20050101, end: 20080101

REACTIONS (2)
  - OSTEONECROSIS OF JAW [None]
  - TOOTH EXTRACTION [None]
